FAERS Safety Report 13817337 (Version 1)
Quarter: 2017Q3

REPORT INFORMATION
  Report Type: Spontaneous
  Country: US (occurrence: US)
  Receive Date: 20170731
  Receipt Date: 20170731
  Transmission Date: 20171127
  Serious: Yes (Other)
  Sender: FDA-Public Use
  Company Number: PHHY2017US107962

PATIENT
  Age: 15 Year
  Sex: Female

DRUGS (2)
  1. NAPROXEN. [Suspect]
     Active Substance: NAPROXEN
     Indication: DYSMENORRHOEA
     Route: 065
  2. IBUPROFEN. [Suspect]
     Active Substance: IBUPROFEN
     Indication: DYSMENORRHOEA
     Route: 065

REACTIONS (5)
  - Oral mucosa erosion [Recovered/Resolved]
  - Nasal mucosal erosion [Recovered/Resolved]
  - Macule [Recovered/Resolved]
  - Fixed eruption [Recovered/Resolved]
  - Skin erosion [Recovered/Resolved]
